FAERS Safety Report 24246923 (Version 1)
Quarter: 2024Q3

REPORT INFORMATION
  Report Type: Spontaneous
  Country: US (occurrence: US)
  Receive Date: 20240826
  Receipt Date: 20240826
  Transmission Date: 20241016
  Serious: No
  Sender: ELI LILLY AND CO
  Company Number: US-ELI_LILLY_AND_COMPANY-US202408012036

PATIENT
  Age: 38 Year
  Sex: Female

DRUGS (4)
  1. ZEPBOUND [Suspect]
     Active Substance: TIRZEPATIDE
     Indication: Autoimmune disorder
     Dosage: 12.5 MG, UNKNOWN
     Route: 065
     Dates: start: 202207
  2. ZEPBOUND [Suspect]
     Active Substance: TIRZEPATIDE
     Indication: Autoimmune disorder
     Dosage: 12.5 MG, UNKNOWN
     Route: 065
     Dates: start: 202207
  3. ZEPBOUND [Suspect]
     Active Substance: TIRZEPATIDE
     Indication: Autoimmune disorder
     Dosage: 12.5 MG, UNKNOWN
     Route: 065
     Dates: start: 202207
  4. ZEPBOUND [Suspect]
     Active Substance: TIRZEPATIDE
     Indication: Autoimmune disorder
     Dosage: 12.5 MG, UNKNOWN
     Route: 065
     Dates: start: 202207

REACTIONS (2)
  - Incorrect dose administered [Unknown]
  - Off label use [Unknown]
